FAERS Safety Report 10177617 (Version 1)
Quarter: 2014Q2

REPORT INFORMATION
  Report Type: Spontaneous
  Country: US (occurrence: US)
  Receive Date: 20140516
  Receipt Date: 20140516
  Transmission Date: 20141212
  Serious: Yes (Hospitalization, Other)
  Sender: FDA-Public Use
  Company Number: US-ELI_LILLY_AND_COMPANY-US201405001200

PATIENT
  Sex: Female

DRUGS (3)
  1. HUMALOG LISPRO [Suspect]
     Indication: TYPE 2 DIABETES MELLITUS
     Dosage: UNK UNK, QD
     Route: 065
     Dates: start: 2013
  2. LEVEMIR [Concomitant]
     Dosage: 8 U, EACH EVENING
  3. PREDNISONE [Concomitant]

REACTIONS (5)
  - Cardiac failure congestive [Unknown]
  - Clostridium difficile infection [Unknown]
  - Atrial fibrillation [Unknown]
  - Fatigue [Unknown]
  - Medication error [Unknown]
